FAERS Safety Report 5442656-0 (Version None)
Quarter: 2007Q3

REPORT INFORMATION
  Report Type: 
  Country: None (occurrence: None)
  Receive Date: 20070904
  Receipt Date: 20070822
  Transmission Date: 20080115
  Serious: Yes (Hospitalization)
  Sender: FDA-Public Use
  Company Number: US-SHR-US-2007-029660

PATIENT
  Age: 54 Year
  Sex: Female
  Weight: 77.098 kg

DRUGS (5)
  1. BETASERON [Suspect]
     Dosage: 8 MIU, EVERY 2D
     Route: 058
     Dates: start: 20070323
  2. PREMARIN [Concomitant]
     Route: 048
  3. ZYPREXA [Concomitant]
     Route: 048
  4. VALIUM [Concomitant]
     Route: 048
  5. METHADONE HCL [Concomitant]
     Route: 048

REACTIONS (3)
  - OVERDOSE [None]
  - PARANOIA [None]
  - SUICIDAL IDEATION [None]
